FAERS Safety Report 17502314 (Version 1)
Quarter: 2020Q1

REPORT INFORMATION
  Report Type: Spontaneous
  Country: DE (occurrence: DE)
  Receive Date: 20200305
  Receipt Date: 20200305
  Transmission Date: 20200409
  Serious: Yes (Death, Other)
  Sender: FDA-Public Use
  Company Number: DE-MYLANLABS-2020M1024015

PATIENT
  Age: 65 Year
  Sex: Female

DRUGS (11)
  1. LORAZEPAM. [Suspect]
     Active Substance: LORAZEPAM
     Indication: DYSPNOEA
     Dosage: 1 MG, PRN (1 MG, 3-4 A DAY AS NEEDED)
     Route: 065
  2. FENTANYL. [Suspect]
     Active Substance: FENTANYL
     Indication: TUMOUR PAIN
     Dosage: 1 DF, EVERY 3 DAYS (12 UG/H)
     Route: 062
  3. TRIMIPRAMINE [Suspect]
     Active Substance: TRIMIPRAMINE
     Indication: FEAR
     Dosage: 25 MG, QD (0-0-0-1)
     Route: 065
  4. METAMIZOLE [Suspect]
     Active Substance: METAMIZOLE
     Indication: PAIN
     Dosage: UNK UNK, QID ((1-1-1-1))
     Route: 065
  5. FENTANYL. [Suspect]
     Active Substance: FENTANYL
     Dosage: 175 UG/HR
     Route: 065
  6. FENTANYL. [Suspect]
     Active Substance: FENTANYL
     Indication: TUMOUR PAIN
     Dosage: UNK, PRN (3-4)
     Route: 060
  7. TRIMIPRAMINE [Suspect]
     Active Substance: TRIMIPRAMINE
     Indication: ANTIDEPRESSANT THERAPY
     Dosage: 75 MG, QD (0-0-0-1)
     Route: 065
  8. TRIMIPRAMINE [Suspect]
     Active Substance: TRIMIPRAMINE
     Indication: ANXIETY
  9. LORAZEPAM. [Suspect]
     Active Substance: LORAZEPAM
     Indication: ANXIETY
  10. TRIMIPRAMINE [Suspect]
     Active Substance: TRIMIPRAMINE
     Indication: SLEEP DISORDER
  11. FENTANYL. [Suspect]
     Active Substance: FENTANYL
     Dosage: 1 DF, EVERY 2 DAYS (12 UG/H)
     Route: 062

REACTIONS (14)
  - Dyspnoea [Unknown]
  - Procedural pain [Unknown]
  - Dysphagia [Unknown]
  - Anxiety [Unknown]
  - Cachexia [Unknown]
  - Sleep disorder [Unknown]
  - Fear [Unknown]
  - Condition aggravated [Fatal]
  - Tumour pain [Unknown]
  - Metastases to spine [Unknown]
  - Metastases to lung [Unknown]
  - Post laminectomy syndrome [Unknown]
  - Cancer fatigue [Unknown]
  - Nervous system disorder [Unknown]
